FAERS Safety Report 19135729 (Version 3)
Quarter: 2025Q1

REPORT INFORMATION
  Report Type: Report from Study
  Country: CA (occurrence: CA)
  Receive Date: 20210414
  Receipt Date: 20250307
  Transmission Date: 20250408
  Serious: Yes (Hospitalization, Other)
  Sender: MYLAN
  Company Number: CA-BRISTOL-MYERS SQUIBB COMPANY-BMS-2019-086999

PATIENT
  Age: 66 Year
  Sex: Female
  Weight: 95 kg

DRUGS (156)
  1. LIPITOR [Suspect]
     Active Substance: ATORVASTATIN CALCIUM
     Indication: Product used for unknown indication
  2. LIPITOR [Suspect]
     Active Substance: ATORVASTATIN CALCIUM
     Route: 065
  3. LIPITOR [Suspect]
     Active Substance: ATORVASTATIN CALCIUM
     Route: 065
  4. LIPITOR [Suspect]
     Active Substance: ATORVASTATIN CALCIUM
  5. ELIQUIS [Suspect]
     Active Substance: APIXABAN
     Indication: Anticoagulant therapy
     Dosage: 5 MILLIGRAM, BID (2 EVERY 1 DAY)
  6. ELIQUIS [Suspect]
     Active Substance: APIXABAN
     Dosage: 5 MILLIGRAM, BID (2 EVERY 1 DAY)
     Route: 048
  7. ELIQUIS [Suspect]
     Active Substance: APIXABAN
     Dosage: 5 MILLIGRAM, BID (2 EVERY 1 DAY)
     Route: 048
  8. ELIQUIS [Suspect]
     Active Substance: APIXABAN
     Dosage: 5 MILLIGRAM, BID (2 EVERY 1 DAY)
  9. ACTEMRA [Suspect]
     Active Substance: TOCILIZUMAB
     Indication: Rheumatoid arthritis
     Dosage: 725.6 MILLIGRAM, MONTHLY (1 EVERY 1 MONTHS)
  10. ACTEMRA [Suspect]
     Active Substance: TOCILIZUMAB
     Dosage: 725.6 MILLIGRAM, MONTHLY (1 EVERY 1 MONTHS)
     Route: 042
  11. ACTEMRA [Suspect]
     Active Substance: TOCILIZUMAB
     Dosage: 725.6 MILLIGRAM, MONTHLY (1 EVERY 1 MONTHS)
     Route: 042
  12. ACTEMRA [Suspect]
     Active Substance: TOCILIZUMAB
     Dosage: 725.6 MILLIGRAM, MONTHLY (1 EVERY 1 MONTHS)
  13. ACTEMRA [Suspect]
     Active Substance: TOCILIZUMAB
     Dosage: 725.6 MILLIGRAM, MONTHLY (1 EVERY 1 MONTHS)
  14. ACTEMRA [Suspect]
     Active Substance: TOCILIZUMAB
     Dosage: 725.6 MILLIGRAM, MONTHLY (1 EVERY 1 MONTHS)
  15. ACTEMRA [Suspect]
     Active Substance: TOCILIZUMAB
     Dosage: 725.6 MILLIGRAM, MONTHLY (1 EVERY 1 MONTHS)
     Route: 042
  16. ACTEMRA [Suspect]
     Active Substance: TOCILIZUMAB
     Dosage: 725.6 MILLIGRAM, MONTHLY (1 EVERY 1 MONTHS)
     Route: 042
  17. ACTEMRA [Suspect]
     Active Substance: TOCILIZUMAB
     Dosage: 800 MILLIGRAM, MONTHLY (1 EVERY 1 MONTHS)
  18. ACTEMRA [Suspect]
     Active Substance: TOCILIZUMAB
     Dosage: 800 MILLIGRAM, MONTHLY (1 EVERY 1 MONTHS)
     Route: 042
  19. ACTEMRA [Suspect]
     Active Substance: TOCILIZUMAB
     Dosage: 800 MILLIGRAM, MONTHLY (1 EVERY 1 MONTHS)
     Route: 042
  20. ACTEMRA [Suspect]
     Active Substance: TOCILIZUMAB
     Dosage: 800 MILLIGRAM, MONTHLY (1 EVERY 1 MONTHS)
  21. ACTEMRA [Suspect]
     Active Substance: TOCILIZUMAB
     Dosage: 800 MILLIGRAM, MONTHLY (1 EVERY 1 MONTHS)
  22. ACTEMRA [Suspect]
     Active Substance: TOCILIZUMAB
     Dosage: 800 MILLIGRAM, MONTHLY (1 EVERY 1 MONTHS)
  23. ACTEMRA [Suspect]
     Active Substance: TOCILIZUMAB
     Dosage: 800 MILLIGRAM, MONTHLY (1 EVERY 1 MONTHS)
     Route: 042
  24. ACTEMRA [Suspect]
     Active Substance: TOCILIZUMAB
     Dosage: 800 MILLIGRAM, MONTHLY (1 EVERY 1 MONTHS)
     Route: 042
  25. ACTEMRA [Suspect]
     Active Substance: TOCILIZUMAB
     Dosage: 728 MILLIGRAM, MONTHLY (1 EVERY 1 MONTHS)
  26. ACTEMRA [Suspect]
     Active Substance: TOCILIZUMAB
     Dosage: 728 MILLIGRAM, MONTHLY (1 EVERY 1 MONTHS)
  27. ACTEMRA [Suspect]
     Active Substance: TOCILIZUMAB
     Dosage: 728 MILLIGRAM, MONTHLY (1 EVERY 1 MONTHS)
     Route: 042
  28. ACTEMRA [Suspect]
     Active Substance: TOCILIZUMAB
     Dosage: 728 MILLIGRAM, MONTHLY (1 EVERY 1 MONTHS)
     Route: 042
  29. ACTEMRA [Suspect]
     Active Substance: TOCILIZUMAB
  30. ACTEMRA [Suspect]
     Active Substance: TOCILIZUMAB
  31. ACTEMRA [Suspect]
     Active Substance: TOCILIZUMAB
     Route: 042
  32. ACTEMRA [Suspect]
     Active Substance: TOCILIZUMAB
     Route: 042
  33. ACTEMRA [Suspect]
     Active Substance: TOCILIZUMAB
  34. ACTEMRA [Suspect]
     Active Substance: TOCILIZUMAB
  35. ACTEMRA [Suspect]
     Active Substance: TOCILIZUMAB
     Route: 042
  36. ACTEMRA [Suspect]
     Active Substance: TOCILIZUMAB
     Route: 042
  37. NADOLOL [Suspect]
     Active Substance: NADOLOL
     Indication: Product used for unknown indication
  38. NADOLOL [Suspect]
     Active Substance: NADOLOL
  39. NADOLOL [Suspect]
     Active Substance: NADOLOL
     Route: 065
  40. NADOLOL [Suspect]
     Active Substance: NADOLOL
     Route: 065
  41. NADOLOL [Suspect]
     Active Substance: NADOLOL
  42. NADOLOL [Suspect]
     Active Substance: NADOLOL
  43. NADOLOL [Suspect]
     Active Substance: NADOLOL
     Route: 065
  44. NADOLOL [Suspect]
     Active Substance: NADOLOL
     Route: 065
  45. PERINDOPRIL [Suspect]
     Active Substance: PERINDOPRIL
     Indication: Product used for unknown indication
  46. PERINDOPRIL [Suspect]
     Active Substance: PERINDOPRIL
  47. PERINDOPRIL [Suspect]
     Active Substance: PERINDOPRIL
     Route: 065
  48. PERINDOPRIL [Suspect]
     Active Substance: PERINDOPRIL
     Route: 065
  49. PERINDOPRIL [Suspect]
     Active Substance: PERINDOPRIL
  50. PERINDOPRIL [Suspect]
     Active Substance: PERINDOPRIL
  51. PERINDOPRIL [Suspect]
     Active Substance: PERINDOPRIL
     Route: 065
  52. PERINDOPRIL [Suspect]
     Active Substance: PERINDOPRIL
     Route: 065
  53. PERINDOPRIL [Suspect]
     Active Substance: PERINDOPRIL
  54. PERINDOPRIL [Suspect]
     Active Substance: PERINDOPRIL
     Route: 065
  55. PERINDOPRIL [Suspect]
     Active Substance: PERINDOPRIL
  56. PERINDOPRIL [Suspect]
     Active Substance: PERINDOPRIL
     Route: 065
  57. ACTEMRA [Suspect]
     Active Substance: TOCILIZUMAB
     Indication: Rheumatoid arthritis
  58. ACTEMRA [Suspect]
     Active Substance: TOCILIZUMAB
     Route: 042
  59. ACTEMRA [Suspect]
     Active Substance: TOCILIZUMAB
     Route: 042
  60. ACTEMRA [Suspect]
     Active Substance: TOCILIZUMAB
  61. NADOLOL [Suspect]
     Active Substance: NADOLOL
     Indication: Product used for unknown indication
  62. NADOLOL [Suspect]
     Active Substance: NADOLOL
     Route: 065
  63. NADOLOL [Suspect]
     Active Substance: NADOLOL
     Route: 065
  64. NADOLOL [Suspect]
     Active Substance: NADOLOL
  65. NADOLOL [Suspect]
     Active Substance: NADOLOL
     Indication: Product used for unknown indication
  66. NADOLOL [Suspect]
     Active Substance: NADOLOL
     Route: 065
  67. NADOLOL [Suspect]
     Active Substance: NADOLOL
     Route: 065
  68. NADOLOL [Suspect]
     Active Substance: NADOLOL
  69. ACETAMINOPHEN [Concomitant]
     Active Substance: ACETAMINOPHEN
     Indication: Product used for unknown indication
  70. ACETAMINOPHEN [Concomitant]
     Active Substance: ACETAMINOPHEN
  71. ACETAMINOPHEN [Concomitant]
     Active Substance: ACETAMINOPHEN
     Route: 065
  72. ACETAMINOPHEN [Concomitant]
     Active Substance: ACETAMINOPHEN
     Route: 065
  73. ACETAMINOPHEN [Concomitant]
     Active Substance: ACETAMINOPHEN
  74. ACETAMINOPHEN [Concomitant]
     Active Substance: ACETAMINOPHEN
  75. ACETAMINOPHEN [Concomitant]
     Active Substance: ACETAMINOPHEN
     Route: 065
  76. ACETAMINOPHEN [Concomitant]
     Active Substance: ACETAMINOPHEN
     Route: 065
  77. SYNTHROID [Concomitant]
     Active Substance: LEVOTHYROXINE SODIUM
     Indication: Product used for unknown indication
  78. SYNTHROID [Concomitant]
     Active Substance: LEVOTHYROXINE SODIUM
     Route: 065
  79. SYNTHROID [Concomitant]
     Active Substance: LEVOTHYROXINE SODIUM
     Route: 065
  80. SYNTHROID [Concomitant]
     Active Substance: LEVOTHYROXINE SODIUM
  81. DELATESTRYL [Concomitant]
     Active Substance: TESTOSTERONE ENANTHATE
     Indication: Product used for unknown indication
  82. DELATESTRYL [Concomitant]
     Active Substance: TESTOSTERONE ENANTHATE
  83. DELATESTRYL [Concomitant]
     Active Substance: TESTOSTERONE ENANTHATE
     Route: 030
  84. DELATESTRYL [Concomitant]
     Active Substance: TESTOSTERONE ENANTHATE
     Route: 030
  85. DELATESTRYL [Concomitant]
     Active Substance: TESTOSTERONE ENANTHATE
  86. DELATESTRYL [Concomitant]
     Active Substance: TESTOSTERONE ENANTHATE
  87. DELATESTRYL [Concomitant]
     Active Substance: TESTOSTERONE ENANTHATE
     Route: 030
  88. DELATESTRYL [Concomitant]
     Active Substance: TESTOSTERONE ENANTHATE
     Route: 030
  89. DELESTROGEN [Concomitant]
     Active Substance: ESTRADIOL VALERATE
     Indication: Product used for unknown indication
  90. DELESTROGEN [Concomitant]
     Active Substance: ESTRADIOL VALERATE
  91. DELESTROGEN [Concomitant]
     Active Substance: ESTRADIOL VALERATE
     Route: 065
  92. DELESTROGEN [Concomitant]
     Active Substance: ESTRADIOL VALERATE
     Route: 065
  93. DELESTROGEN [Concomitant]
     Active Substance: ESTRADIOL VALERATE
  94. DELESTROGEN [Concomitant]
     Active Substance: ESTRADIOL VALERATE
  95. DELESTROGEN [Concomitant]
     Active Substance: ESTRADIOL VALERATE
     Route: 065
  96. DELESTROGEN [Concomitant]
     Active Substance: ESTRADIOL VALERATE
     Route: 065
  97. EFFEXOR [Concomitant]
     Active Substance: VENLAFAXINE HYDROCHLORIDE
     Indication: Product used for unknown indication
  98. EFFEXOR [Concomitant]
     Active Substance: VENLAFAXINE HYDROCHLORIDE
  99. EFFEXOR [Concomitant]
     Active Substance: VENLAFAXINE HYDROCHLORIDE
     Route: 065
  100. EFFEXOR [Concomitant]
     Active Substance: VENLAFAXINE HYDROCHLORIDE
     Route: 065
  101. EFFEXOR [Concomitant]
     Active Substance: VENLAFAXINE HYDROCHLORIDE
  102. EFFEXOR [Concomitant]
     Active Substance: VENLAFAXINE HYDROCHLORIDE
  103. EFFEXOR [Concomitant]
     Active Substance: VENLAFAXINE HYDROCHLORIDE
     Route: 065
  104. EFFEXOR [Concomitant]
     Active Substance: VENLAFAXINE HYDROCHLORIDE
     Route: 065
  105. XANAX [Concomitant]
     Active Substance: ALPRAZOLAM
     Indication: Product used for unknown indication
  106. XANAX [Concomitant]
     Active Substance: ALPRAZOLAM
     Route: 065
  107. XANAX [Concomitant]
     Active Substance: ALPRAZOLAM
     Route: 065
  108. XANAX [Concomitant]
     Active Substance: ALPRAZOLAM
  109. FUROSEMIDE [Concomitant]
     Active Substance: FUROSEMIDE
     Indication: Product used for unknown indication
  110. FUROSEMIDE [Concomitant]
     Active Substance: FUROSEMIDE
     Route: 065
  111. FUROSEMIDE [Concomitant]
     Active Substance: FUROSEMIDE
     Route: 065
  112. FUROSEMIDE [Concomitant]
     Active Substance: FUROSEMIDE
  113. TYLENOL [Concomitant]
     Active Substance: ACETAMINOPHEN
     Indication: Product used for unknown indication
  114. TYLENOL [Concomitant]
     Active Substance: ACETAMINOPHEN
     Route: 065
  115. TYLENOL [Concomitant]
     Active Substance: ACETAMINOPHEN
     Route: 065
  116. TYLENOL [Concomitant]
     Active Substance: ACETAMINOPHEN
  117. VENLAFAXINE HYDROCHLORIDE [Concomitant]
     Active Substance: VENLAFAXINE HYDROCHLORIDE
     Indication: Product used for unknown indication
  118. VENLAFAXINE HYDROCHLORIDE [Concomitant]
     Active Substance: VENLAFAXINE HYDROCHLORIDE
  119. VENLAFAXINE HYDROCHLORIDE [Concomitant]
     Active Substance: VENLAFAXINE HYDROCHLORIDE
     Route: 065
  120. VENLAFAXINE HYDROCHLORIDE [Concomitant]
     Active Substance: VENLAFAXINE HYDROCHLORIDE
     Route: 065
  121. VENLAFAXINE HYDROCHLORIDE [Concomitant]
     Active Substance: VENLAFAXINE HYDROCHLORIDE
  122. VENLAFAXINE HYDROCHLORIDE [Concomitant]
     Active Substance: VENLAFAXINE HYDROCHLORIDE
  123. VENLAFAXINE HYDROCHLORIDE [Concomitant]
     Active Substance: VENLAFAXINE HYDROCHLORIDE
     Route: 065
  124. VENLAFAXINE HYDROCHLORIDE [Concomitant]
     Active Substance: VENLAFAXINE HYDROCHLORIDE
     Route: 065
  125. ROSUVASTATIN CALCIUM [Concomitant]
     Active Substance: ROSUVASTATIN CALCIUM
     Indication: Blood cholesterol abnormal
  126. ROSUVASTATIN CALCIUM [Concomitant]
     Active Substance: ROSUVASTATIN CALCIUM
     Route: 065
  127. ROSUVASTATIN CALCIUM [Concomitant]
     Active Substance: ROSUVASTATIN CALCIUM
     Route: 065
  128. ROSUVASTATIN CALCIUM [Concomitant]
     Active Substance: ROSUVASTATIN CALCIUM
  129. CALCIUM [Concomitant]
     Active Substance: CALCIUM
     Indication: Product used for unknown indication
  130. CALCIUM [Concomitant]
     Active Substance: CALCIUM
     Route: 065
  131. CALCIUM [Concomitant]
     Active Substance: CALCIUM
     Route: 065
  132. CALCIUM [Concomitant]
     Active Substance: CALCIUM
  133. DIOVAN [Concomitant]
     Active Substance: VALSARTAN
     Indication: Product used for unknown indication
  134. DIOVAN [Concomitant]
     Active Substance: VALSARTAN
     Route: 065
  135. DIOVAN [Concomitant]
     Active Substance: VALSARTAN
     Route: 065
  136. DIOVAN [Concomitant]
     Active Substance: VALSARTAN
  137. ESTRADIOL VALERATE [Concomitant]
     Active Substance: ESTRADIOL VALERATE
     Indication: Product used for unknown indication
  138. ESTRADIOL VALERATE [Concomitant]
     Active Substance: ESTRADIOL VALERATE
  139. ESTRADIOL VALERATE [Concomitant]
     Active Substance: ESTRADIOL VALERATE
     Route: 065
  140. ESTRADIOL VALERATE [Concomitant]
     Active Substance: ESTRADIOL VALERATE
     Route: 065
  141. ESTRADIOL VALERATE [Concomitant]
     Active Substance: ESTRADIOL VALERATE
  142. ESTRADIOL VALERATE [Concomitant]
     Active Substance: ESTRADIOL VALERATE
  143. ESTRADIOL VALERATE [Concomitant]
     Active Substance: ESTRADIOL VALERATE
     Route: 065
  144. ESTRADIOL VALERATE [Concomitant]
     Active Substance: ESTRADIOL VALERATE
     Route: 065
  145. EZETIMIBE [Concomitant]
     Active Substance: EZETIMIBE
     Indication: Product used for unknown indication
  146. EZETIMIBE [Concomitant]
     Active Substance: EZETIMIBE
     Route: 065
  147. EZETIMIBE [Concomitant]
     Active Substance: EZETIMIBE
     Route: 065
  148. EZETIMIBE [Concomitant]
     Active Substance: EZETIMIBE
  149. ACETAMINOPHEN [Concomitant]
     Active Substance: ACETAMINOPHEN
     Indication: Product used for unknown indication
  150. ACETAMINOPHEN [Concomitant]
     Active Substance: ACETAMINOPHEN
  151. ACETAMINOPHEN [Concomitant]
     Active Substance: ACETAMINOPHEN
     Route: 065
  152. ACETAMINOPHEN [Concomitant]
     Active Substance: ACETAMINOPHEN
     Route: 065
  153. ACETAMINOPHEN [Concomitant]
     Active Substance: ACETAMINOPHEN
  154. ACETAMINOPHEN [Concomitant]
     Active Substance: ACETAMINOPHEN
  155. ACETAMINOPHEN [Concomitant]
     Active Substance: ACETAMINOPHEN
     Route: 065
  156. ACETAMINOPHEN [Concomitant]
     Active Substance: ACETAMINOPHEN
     Route: 065

REACTIONS (68)
  - Contusion [Not Recovered/Not Resolved]
  - Rectal haemorrhage [Not Recovered/Not Resolved]
  - Epistaxis [Not Recovered/Not Resolved]
  - Ulcer haemorrhage [Not Recovered/Not Resolved]
  - Aphthous ulcer [Not Recovered/Not Resolved]
  - Asthenia [Not Recovered/Not Resolved]
  - Atrial fibrillation [Not Recovered/Not Resolved]
  - Bacterial infection [Not Recovered/Not Resolved]
  - Blood pressure fluctuation [Not Recovered/Not Resolved]
  - Blood pressure increased [Not Recovered/Not Resolved]
  - Bronchitis [Not Recovered/Not Resolved]
  - Bursitis [Not Recovered/Not Resolved]
  - Cardiac failure congestive [Not Recovered/Not Resolved]
  - Cough [Not Recovered/Not Resolved]
  - Deep vein thrombosis [Not Recovered/Not Resolved]
  - Dysphonia [Not Recovered/Not Resolved]
  - Dyspnoea [Not Recovered/Not Resolved]
  - Ear congestion [Not Recovered/Not Resolved]
  - Fungal infection [Not Recovered/Not Resolved]
  - Gait inability [Not Recovered/Not Resolved]
  - Headache [Not Recovered/Not Resolved]
  - Heart rate decreased [Not Recovered/Not Resolved]
  - Herpes zoster [Not Recovered/Not Resolved]
  - Inflammation [Not Recovered/Not Resolved]
  - Ligament sprain [Not Recovered/Not Resolved]
  - Migraine [Not Recovered/Not Resolved]
  - Nasal congestion [Not Recovered/Not Resolved]
  - Nasopharyngitis [Not Recovered/Not Resolved]
  - Oral herpes [Not Recovered/Not Resolved]
  - Pain [Not Recovered/Not Resolved]
  - Peripheral swelling [Not Recovered/Not Resolved]
  - Sciatica [Not Recovered/Not Resolved]
  - Sinusitis [Not Recovered/Not Resolved]
  - Stress [Not Recovered/Not Resolved]
  - Swelling [Not Recovered/Not Resolved]
  - Thyroid disorder [Not Recovered/Not Resolved]
  - Urinary tract infection [Not Recovered/Not Resolved]
  - Weight decreased [Not Recovered/Not Resolved]
  - Weight increased [Not Recovered/Not Resolved]
  - Oxygen saturation decreased [Not Recovered/Not Resolved]
  - Blood pressure systolic increased [Not Recovered/Not Resolved]
  - Faeces discoloured [Not Recovered/Not Resolved]
  - Gastric ulcer [Not Recovered/Not Resolved]
  - Haemoglobin decreased [Not Recovered/Not Resolved]
  - Weight fluctuation [Not Recovered/Not Resolved]
  - Body temperature decreased [Not Recovered/Not Resolved]
  - Blood pressure diastolic abnormal [Not Recovered/Not Resolved]
  - Back pain [Not Recovered/Not Resolved]
  - Blood pressure systolic abnormal [Not Recovered/Not Resolved]
  - Cellulitis [Not Recovered/Not Resolved]
  - Micturition urgency [Not Recovered/Not Resolved]
  - Burning sensation [Not Recovered/Not Resolved]
  - Infusion related reaction [Not Recovered/Not Resolved]
  - Irritable bowel syndrome [Not Recovered/Not Resolved]
  - Vaginal infection [Not Recovered/Not Resolved]
  - Nausea [Not Recovered/Not Resolved]
  - Fatigue [Not Recovered/Not Resolved]
  - Abdominal pain [Not Recovered/Not Resolved]
  - Urticaria [Not Recovered/Not Resolved]
  - Chest pain [Not Recovered/Not Resolved]
  - Myalgia [Not Recovered/Not Resolved]
  - Musculoskeletal pain [Not Recovered/Not Resolved]
  - Arthralgia [Not Recovered/Not Resolved]
  - Pain in extremity [Not Recovered/Not Resolved]
  - Rash [Not Recovered/Not Resolved]
  - Diarrhoea [Not Recovered/Not Resolved]
  - Musculoskeletal chest pain [Not Recovered/Not Resolved]
  - Off label use [Not Recovered/Not Resolved]
